FAERS Safety Report 17467269 (Version 1)
Quarter: 2020Q1

REPORT INFORMATION
  Report Type: Spontaneous
  Country: US (occurrence: US)
  Receive Date: 20200227
  Receipt Date: 20200227
  Transmission Date: 20200409
  Serious: No
  Sender: FDA-Public Use
  Company Number: US-GW PHARMA-202002USGW00711

PATIENT

DRUGS (2)
  1. EPIDIOLEX [Suspect]
     Active Substance: CANNABIDIOL
     Indication: LENNOX-GASTAUT SYNDROME
     Dosage: 210 MILLIGRAM, BID
     Route: 048
     Dates: start: 20200207, end: 202002
  2. EPIDIOLEX [Suspect]
     Active Substance: CANNABIDIOL
     Dosage: 420 MILLIGRAM, BID
     Route: 048
     Dates: start: 202002

REACTIONS (3)
  - Asthenia [Unknown]
  - Fall [Unknown]
  - Vomiting [Unknown]

NARRATIVE: CASE EVENT DATE: 20200219
